FAERS Safety Report 24758619 (Version 1)
Quarter: 2024Q4

REPORT INFORMATION
  Report Type: Spontaneous
  Country: US (occurrence: None)
  Receive Date: 20241219
  Receipt Date: 20241219
  Transmission Date: 20250115
  Serious: Yes (Hospitalization)
  Sender: Public
  Company Number: None

PATIENT
  Sex: Male

DRUGS (11)
  1. POMALYST [Suspect]
     Active Substance: POMALIDOMIDE
     Indication: Plasma cell myeloma
     Dosage: FREQUENCY : DAILY;?
     Route: 048
     Dates: start: 20240314
  2. ACYCLOVIR TAB 800MG [Concomitant]
  3. BENICAR TAB 20MG [Concomitant]
  4. CALCIUM 600 TAB +D [Concomitant]
  5. CYCLOBENZAPR TAB10MG [Concomitant]
  6. D-2000 MAXIMUM STRENGTH [Concomitant]
  7. DEXAMETHASONE [Concomitant]
     Active Substance: DEXAMETHASONE
  8. DOXYCYCL HYC CAP 100MG [Concomitant]
  9. GABAPENTIN [Concomitant]
     Active Substance: GABAPENTIN
  10. KYPROLIS SOL 60MG [Concomitant]
  11. TAMSULOSIN [Concomitant]
     Active Substance: TAMSULOSIN

REACTIONS (2)
  - Cholecystectomy [None]
  - Intentional dose omission [None]
